FAERS Safety Report 8519262-4 (Version None)
Quarter: 2012Q3

REPORT INFORMATION
  Report Type: 
  Country: None (occurrence: None)
  Receive Date: 20120718
  Receipt Date: 20120713
  Transmission Date: 20120928
  Serious: No
  Sender: FDA-Public Use
  Company Number: US-B.I. PHARMACEUTICALS,INC./RIDGEFIELD-2012-BP-10404BP

PATIENT
  Sex: Male
  Weight: 102.51 kg

DRUGS (7)
  1. PAXIL [Concomitant]
     Indication: DEPRESSION
     Dosage: 40 MG
     Route: 048
     Dates: start: 20090101
  2. PRADAXA [Suspect]
     Indication: ATRIAL FIBRILLATION
     Dosage: 300 MG
     Route: 048
     Dates: start: 20120302
  3. PAXIL [Concomitant]
     Indication: ANXIETY
  4. ASPIRIN [Concomitant]
     Dosage: 162 MG
     Route: 048
     Dates: start: 20080101
  5. VERAPAMIL [Concomitant]
     Indication: CARDIAC DISORDER
     Dosage: 180 MG
     Route: 048
     Dates: start: 20120413
  6. XANAX [Concomitant]
     Indication: ANXIETY
     Dosage: 0.5 MG
     Route: 048
     Dates: start: 20100101
  7. MYSOLINE [Concomitant]
     Dosage: 50 MG
     Route: 048
     Dates: start: 20020101

REACTIONS (3)
  - CONSTIPATION [None]
  - DYSPEPSIA [None]
  - HYPERTENSION [None]
